FAERS Safety Report 10573226 (Version 2)
Quarter: 2015Q4

REPORT INFORMATION
  Report Type: Spontaneous
  Country: US (occurrence: US)
  Receive Date: 20141110
  Receipt Date: 20151109
  Transmission Date: 20160304
  Serious: Yes (Other)
  Sender: FDA-Public Use
  Company Number: US-BAYER-2014-163384

PATIENT
  Age: 29 Year
  Sex: Female
  Weight: 113.38 kg

DRUGS (2)
  1. DEPO-PROVERA [Concomitant]
     Active Substance: MEDROXYPROGESTERONE ACETATE
  2. MIRENA [Suspect]
     Active Substance: LEVONORGESTREL
     Indication: CONTRACEPTION
     Dosage: 20 MCG/24HR, CONT
     Route: 015
     Dates: start: 201006, end: 20130703

REACTIONS (9)
  - Injury [None]
  - Device dislocation [None]
  - Anxiety [None]
  - Dysmenorrhoea [None]
  - Post procedural haemorrhage [None]
  - Syncope [None]
  - Device dislocation [None]
  - Pain [None]
  - Depression [None]

NARRATIVE: CASE EVENT DATE: 201304
